FAERS Safety Report 24946393 (Version 5)
Quarter: 2025Q3

REPORT INFORMATION
  Report Type: Spontaneous
  Country: CA (occurrence: CA)
  Receive Date: 20250210
  Receipt Date: 20250703
  Transmission Date: 20251021
  Serious: Yes (Death, Life-Threatening, Hospitalization, Disabling, Congenital Anomaly, Other)
  Sender: Haleon PLC
  Company Number: CA-002147023-NVSC2025CA013655

PATIENT
  Age: 40 Year
  Sex: Female
  Weight: 96 kg

DRUGS (458)
  1. VOLTAREN [Suspect]
     Active Substance: DICLOFENAC SODIUM
     Indication: Product used for unknown indication
  2. VOLTAREN [Suspect]
     Active Substance: DICLOFENAC SODIUM
     Route: 058
  3. CALCIUM CITRATE [Suspect]
     Active Substance: CALCIUM CITRATE
     Indication: Product used for unknown indication
  4. CALCIUM CITRATE [Suspect]
     Active Substance: CALCIUM CITRATE
  5. CETIRIZINE [Suspect]
     Active Substance: CETIRIZINE HYDROCHLORIDE
     Indication: Rheumatoid arthritis
     Route: 048
  6. CETIRIZINE [Suspect]
     Active Substance: CETIRIZINE HYDROCHLORIDE
     Indication: Off label use
     Route: 048
  7. CETIRIZINE [Suspect]
     Active Substance: CETIRIZINE HYDROCHLORIDE
  8. CETIRIZINE [Suspect]
     Active Substance: CETIRIZINE HYDROCHLORIDE
     Route: 048
  9. CETIRIZINE [Suspect]
     Active Substance: CETIRIZINE HYDROCHLORIDE
     Route: 048
  10. CETIRIZINE [Suspect]
     Active Substance: CETIRIZINE HYDROCHLORIDE
  11. LEFLUNOMIDE [Suspect]
     Active Substance: LEFLUNOMIDE
     Indication: Rheumatoid arthritis
  12. LEFLUNOMIDE [Suspect]
     Active Substance: LEFLUNOMIDE
  13. LEFLUNOMIDE [Suspect]
     Active Substance: LEFLUNOMIDE
     Route: 048
  14. LEFLUNOMIDE [Suspect]
     Active Substance: LEFLUNOMIDE
  15. LEFLUNOMIDE [Suspect]
     Active Substance: LEFLUNOMIDE
  16. ALENDRONATE SODIUM [Suspect]
     Active Substance: ALENDRONATE SODIUM
     Indication: Rheumatoid arthritis
  17. ALENDRONATE SODIUM [Suspect]
     Active Substance: ALENDRONATE SODIUM
     Route: 048
  18. ALENDRONATE SODIUM [Suspect]
     Active Substance: ALENDRONATE SODIUM
  19. MAGNESIUM CITRATE [Suspect]
     Active Substance: MAGNESIUM CITRATE
     Indication: Product used for unknown indication
  20. RAMIPRIL [Suspect]
     Active Substance: RAMIPRIL
     Indication: Rheumatoid arthritis
  21. RAMIPRIL [Suspect]
     Active Substance: RAMIPRIL
  22. RAMIPRIL [Suspect]
     Active Substance: RAMIPRIL
  23. RAMIPRIL [Suspect]
     Active Substance: RAMIPRIL
     Route: 016
  24. RAMIPRIL [Suspect]
     Active Substance: RAMIPRIL
     Route: 016
  25. RAMIPRIL [Suspect]
     Active Substance: RAMIPRIL
  26. RAMIPRIL [Suspect]
     Active Substance: RAMIPRIL
  27. RAMIPRIL [Suspect]
     Active Substance: RAMIPRIL
  28. INFLIXIMAB [Suspect]
     Active Substance: INFLIXIMAB
     Indication: Rheumatoid arthritis
     Route: 042
  29. INFLIXIMAB [Suspect]
     Active Substance: INFLIXIMAB
  30. INFLIXIMAB [Suspect]
     Active Substance: INFLIXIMAB
  31. INFLIXIMAB [Suspect]
     Active Substance: INFLIXIMAB
  32. INFLIXIMAB [Suspect]
     Active Substance: INFLIXIMAB
  33. INFLIXIMAB [Suspect]
     Active Substance: INFLIXIMAB
  34. INFLIXIMAB [Suspect]
     Active Substance: INFLIXIMAB
  35. INFLIXIMAB [Suspect]
     Active Substance: INFLIXIMAB
  36. INFLIXIMAB [Suspect]
     Active Substance: INFLIXIMAB
  37. INFLIXIMAB [Suspect]
     Active Substance: INFLIXIMAB
  38. TRAMADOL HYDROCHLORIDE [Suspect]
     Active Substance: TRAMADOL HYDROCHLORIDE
     Indication: Product used for unknown indication
  39. TRIAMCINOLONE ACETONIDE [Suspect]
     Active Substance: TRIAMCINOLONE ACETONIDE
     Indication: Rheumatoid arthritis
     Route: 014
  40. TRIAMCINOLONE ACETONIDE [Suspect]
     Active Substance: TRIAMCINOLONE ACETONIDE
     Route: 014
  41. TRIAMCINOLONE ACETONIDE [Suspect]
     Active Substance: TRIAMCINOLONE ACETONIDE
  42. TRIAMCINOLONE ACETONIDE [Suspect]
     Active Substance: TRIAMCINOLONE ACETONIDE
  43. TRIAMCINOLONE ACETONIDE [Suspect]
     Active Substance: TRIAMCINOLONE ACETONIDE
  44. METHOTREXATE [Suspect]
     Active Substance: METHOTREXATE
     Indication: Rheumatoid arthritis
  45. METHOTREXATE [Suspect]
     Active Substance: METHOTREXATE
     Route: 048
  46. METHOTREXATE [Suspect]
     Active Substance: METHOTREXATE
  47. METHOTREXATE [Suspect]
     Active Substance: METHOTREXATE
  48. METHOTREXATE [Suspect]
     Active Substance: METHOTREXATE
     Route: 048
  49. METHOTREXATE [Suspect]
     Active Substance: METHOTREXATE
     Route: 048
  50. METHOTREXATE [Suspect]
     Active Substance: METHOTREXATE
     Route: 013
  51. METHOTREXATE [Suspect]
     Active Substance: METHOTREXATE
  52. METHOTREXATE [Suspect]
     Active Substance: METHOTREXATE
     Route: 048
  53. METHOTREXATE [Suspect]
     Active Substance: METHOTREXATE
     Route: 048
  54. METHOTREXATE [Suspect]
     Active Substance: METHOTREXATE
  55. METHOTREXATE [Suspect]
     Active Substance: METHOTREXATE
  56. METHOTREXATE [Suspect]
     Active Substance: METHOTREXATE
     Route: 058
  57. METHOTREXATE [Suspect]
     Active Substance: METHOTREXATE
     Route: 058
  58. METHOTREXATE [Suspect]
     Active Substance: METHOTREXATE
     Route: 048
  59. METHOTREXATE [Suspect]
     Active Substance: METHOTREXATE
  60. METHOTREXATE [Suspect]
     Active Substance: METHOTREXATE
     Route: 016
  61. METHOTREXATE [Suspect]
     Active Substance: METHOTREXATE
     Route: 048
  62. METHOTREXATE [Suspect]
     Active Substance: METHOTREXATE
  63. METHOTREXATE [Suspect]
     Active Substance: METHOTREXATE
     Route: 013
  64. METHOTREXATE [Suspect]
     Active Substance: METHOTREXATE
     Route: 048
  65. METHOTREXATE [Suspect]
     Active Substance: METHOTREXATE
     Route: 058
  66. METHOTREXATE [Suspect]
     Active Substance: METHOTREXATE
  67. METHOTREXATE [Suspect]
     Active Substance: METHOTREXATE
     Route: 048
  68. METHOTREXATE [Suspect]
     Active Substance: METHOTREXATE
     Route: 048
  69. METHOTREXATE [Suspect]
     Active Substance: METHOTREXATE
     Route: 048
  70. METHOTREXATE [Suspect]
     Active Substance: METHOTREXATE
     Route: 058
  71. METHOTREXATE [Suspect]
     Active Substance: METHOTREXATE
     Route: 048
  72. METHOTREXATE [Suspect]
     Active Substance: METHOTREXATE
  73. METHOTREXATE [Suspect]
     Active Substance: METHOTREXATE
  74. METHOTREXATE [Suspect]
     Active Substance: METHOTREXATE
  75. METHOTREXATE [Suspect]
     Active Substance: METHOTREXATE
  76. PREDNISONE [Suspect]
     Active Substance: PREDNISONE
     Indication: Rheumatoid arthritis
  77. PREDNISONE [Suspect]
     Active Substance: PREDNISONE
  78. PREDNISONE [Suspect]
     Active Substance: PREDNISONE
     Route: 048
  79. PREDNISONE [Suspect]
     Active Substance: PREDNISONE
  80. PREDNISONE [Suspect]
     Active Substance: PREDNISONE
     Route: 048
  81. PREDNISONE [Suspect]
     Active Substance: PREDNISONE
  82. PREDNISONE [Suspect]
     Active Substance: PREDNISONE
  83. PREDNISONE [Suspect]
     Active Substance: PREDNISONE
  84. PREDNISONE [Suspect]
     Active Substance: PREDNISONE
  85. PREDNISONE [Suspect]
     Active Substance: PREDNISONE
  86. PREDNISONE [Suspect]
     Active Substance: PREDNISONE
  87. PREDNISONE [Suspect]
     Active Substance: PREDNISONE
  88. PREDNISONE [Suspect]
     Active Substance: PREDNISONE
  89. PREDNISONE [Suspect]
     Active Substance: PREDNISONE
  90. PREDNISONE [Suspect]
     Active Substance: PREDNISONE
  91. SULFASALAZINE [Suspect]
     Active Substance: SULFASALAZINE
     Indication: Rheumatoid arthritis
  92. SULFASALAZINE [Suspect]
     Active Substance: SULFASALAZINE
  93. SULFASALAZINE [Suspect]
     Active Substance: SULFASALAZINE
  94. SULFASALAZINE [Suspect]
     Active Substance: SULFASALAZINE
  95. SIMPONI [Suspect]
     Active Substance: GOLIMUMAB
     Indication: Rheumatoid arthritis
     Route: 058
  96. SIMPONI [Suspect]
     Active Substance: GOLIMUMAB
     Indication: Prostatic specific antigen
     Route: 058
  97. SIMPONI [Suspect]
     Active Substance: GOLIMUMAB
  98. SIMPONI [Suspect]
     Active Substance: GOLIMUMAB
  99. SIMPONI [Suspect]
     Active Substance: GOLIMUMAB
  100. SIMPONI [Suspect]
     Active Substance: GOLIMUMAB
  101. SIMPONI [Suspect]
     Active Substance: GOLIMUMAB
  102. SIMPONI [Suspect]
     Active Substance: GOLIMUMAB
  103. SIMPONI [Suspect]
     Active Substance: GOLIMUMAB
  104. SIMPONI [Suspect]
     Active Substance: GOLIMUMAB
     Route: 058
  105. SIMPONI [Suspect]
     Active Substance: GOLIMUMAB
     Route: 058
  106. SIMPONI [Suspect]
     Active Substance: GOLIMUMAB
     Route: 058
  107. SIMPONI [Suspect]
     Active Substance: GOLIMUMAB
  108. SIMPONI [Suspect]
     Active Substance: GOLIMUMAB
  109. SIRUKUMAB [Suspect]
     Active Substance: SIRUKUMAB
     Indication: Product used for unknown indication
  110. SIRUKUMAB [Suspect]
     Active Substance: SIRUKUMAB
  111. SIRUKUMAB [Suspect]
     Active Substance: SIRUKUMAB
  112. SIRUKUMAB [Suspect]
     Active Substance: SIRUKUMAB
  113. SIRUKUMAB [Suspect]
     Active Substance: SIRUKUMAB
  114. SIRUKUMAB [Suspect]
     Active Substance: SIRUKUMAB
  115. SIRUKUMAB [Suspect]
     Active Substance: SIRUKUMAB
  116. SIRUKUMAB [Suspect]
     Active Substance: SIRUKUMAB
  117. SIRUKUMAB [Suspect]
     Active Substance: SIRUKUMAB
  118. SIRUKUMAB [Suspect]
     Active Substance: SIRUKUMAB
  119. SIRUKUMAB [Suspect]
     Active Substance: SIRUKUMAB
  120. SIRUKUMAB [Suspect]
     Active Substance: SIRUKUMAB
  121. SIRUKUMAB [Suspect]
     Active Substance: SIRUKUMAB
  122. SIRUKUMAB [Suspect]
     Active Substance: SIRUKUMAB
  123. SIRUKUMAB [Suspect]
     Active Substance: SIRUKUMAB
  124. SIRUKUMAB [Suspect]
     Active Substance: SIRUKUMAB
  125. SIRUKUMAB [Suspect]
     Active Substance: SIRUKUMAB
  126. GOLD SODIUM THIOMALATE [Suspect]
     Active Substance: GOLD SODIUM THIOMALATE
     Indication: Product used for unknown indication
     Route: 048
  127. GOLD SODIUM THIOMALATE [Suspect]
     Active Substance: GOLD SODIUM THIOMALATE
     Route: 030
  128. GOLD SODIUM THIOMALATE [Suspect]
     Active Substance: GOLD SODIUM THIOMALATE
  129. GOLD SODIUM THIOMALATE [Suspect]
     Active Substance: GOLD SODIUM THIOMALATE
  130. GOLD SODIUM THIOMALATE [Suspect]
     Active Substance: GOLD SODIUM THIOMALATE
     Route: 048
  131. GOLD SODIUM THIOMALATE [Suspect]
     Active Substance: GOLD SODIUM THIOMALATE
     Route: 030
  132. GOLD SODIUM THIOMALATE [Suspect]
     Active Substance: GOLD SODIUM THIOMALATE
  133. GOLD SODIUM THIOMALATE [Suspect]
     Active Substance: GOLD SODIUM THIOMALATE
  134. GOLD SODIUM THIOMALATE [Suspect]
     Active Substance: GOLD SODIUM THIOMALATE
     Route: 058
  135. PREDNISONE [Suspect]
     Active Substance: PREDNISONE
     Indication: Rheumatoid arthritis
     Route: 048
  136. PREDNISONE [Suspect]
     Active Substance: PREDNISONE
  137. PREDNISONE [Suspect]
     Active Substance: PREDNISONE
     Route: 048
  138. PREDNISONE [Suspect]
     Active Substance: PREDNISONE
     Route: 048
  139. PREDNISONE [Suspect]
     Active Substance: PREDNISONE
     Route: 048
  140. PREDNISONE [Suspect]
     Active Substance: PREDNISONE
  141. PREDNISONE [Suspect]
     Active Substance: PREDNISONE
  142. PREDNISONE [Suspect]
     Active Substance: PREDNISONE
     Route: 048
  143. PREDNISONE [Suspect]
     Active Substance: PREDNISONE
     Route: 048
  144. PREDNISONE [Suspect]
     Active Substance: PREDNISONE
  145. HYDROXYCHLOROQUINE SULFATE [Suspect]
     Active Substance: HYDROXYCHLOROQUINE SULFATE
     Indication: Rheumatoid arthritis
     Route: 048
  146. HYDROXYCHLOROQUINE SULFATE [Suspect]
     Active Substance: HYDROXYCHLOROQUINE SULFATE
     Route: 048
  147. HYDROXYCHLOROQUINE SULFATE [Suspect]
     Active Substance: HYDROXYCHLOROQUINE SULFATE
  148. HYDROXYCHLOROQUINE SULFATE [Suspect]
     Active Substance: HYDROXYCHLOROQUINE SULFATE
  149. HYDROXYCHLOROQUINE SULFATE [Suspect]
     Active Substance: HYDROXYCHLOROQUINE SULFATE
  150. HYDROXYCHLOROQUINE SULFATE [Suspect]
     Active Substance: HYDROXYCHLOROQUINE SULFATE
     Route: 048
  151. HYDROXYCHLOROQUINE SULFATE [Suspect]
     Active Substance: HYDROXYCHLOROQUINE SULFATE
     Route: 048
  152. HYDROXYCHLOROQUINE SULFATE [Suspect]
     Active Substance: HYDROXYCHLOROQUINE SULFATE
  153. HYDROXYCHLOROQUINE SULFATE [Suspect]
     Active Substance: HYDROXYCHLOROQUINE SULFATE
  154. HYDROXYCHLOROQUINE SULFATE [Suspect]
     Active Substance: HYDROXYCHLOROQUINE SULFATE
  155. METHYLPREDNISOLONE [Suspect]
     Active Substance: METHYLPREDNISOLONE
     Indication: Product used for unknown indication
  156. METHYLPREDNISOLONE [Suspect]
     Active Substance: METHYLPREDNISOLONE
  157. RITUXIMAB [Suspect]
     Active Substance: RITUXIMAB
     Indication: Rheumatoid arthritis
  158. RITUXIMAB [Suspect]
     Active Substance: RITUXIMAB
  159. RITUXIMAB [Suspect]
     Active Substance: RITUXIMAB
  160. RITUXIMAB [Suspect]
     Active Substance: RITUXIMAB
  161. RITUXIMAB [Suspect]
     Active Substance: RITUXIMAB
  162. RITUXIMAB [Suspect]
     Active Substance: RITUXIMAB
  163. RITUXIMAB [Suspect]
     Active Substance: RITUXIMAB
  164. RITUXIMAB [Suspect]
     Active Substance: RITUXIMAB
  165. RITUXIMAB [Suspect]
     Active Substance: RITUXIMAB
  166. RITUXIMAB [Suspect]
     Active Substance: RITUXIMAB
  167. RITUXIMAB [Suspect]
     Active Substance: RITUXIMAB
  168. RITUXIMAB [Suspect]
     Active Substance: RITUXIMAB
  169. RITUXIMAB [Suspect]
     Active Substance: RITUXIMAB
  170. RITUXIMAB [Suspect]
     Active Substance: RITUXIMAB
  171. RITUXIMAB [Suspect]
     Active Substance: RITUXIMAB
  172. RITUXIMAB [Suspect]
     Active Substance: RITUXIMAB
  173. RITUXIMAB [Suspect]
     Active Substance: RITUXIMAB
  174. RITUXIMAB [Suspect]
     Active Substance: RITUXIMAB
  175. RITUXIMAB [Suspect]
     Active Substance: RITUXIMAB
  176. RITUXIMAB [Suspect]
     Active Substance: RITUXIMAB
  177. RITUXIMAB [Suspect]
     Active Substance: RITUXIMAB
  178. RITUXIMAB [Suspect]
     Active Substance: RITUXIMAB
  179. RITUXIMAB [Suspect]
     Active Substance: RITUXIMAB
  180. RITUXIMAB [Suspect]
     Active Substance: RITUXIMAB
  181. RITUXIMAB [Suspect]
     Active Substance: RITUXIMAB
     Dosage: DAILY DOSE: DURATION OF 4 MONTHS AND 28 DAYS, 2/DAYS
  182. RITUXIMAB [Suspect]
     Active Substance: RITUXIMAB
  183. RITUXIMAB [Suspect]
     Active Substance: RITUXIMAB
  184. RITUXIMAB [Suspect]
     Active Substance: RITUXIMAB
  185. RITUXIMAB [Suspect]
     Active Substance: RITUXIMAB
  186. RITUXIMAB [Suspect]
     Active Substance: RITUXIMAB
  187. RITUXIMAB [Suspect]
     Active Substance: RITUXIMAB
  188. RITUXIMAB [Suspect]
     Active Substance: RITUXIMAB
  189. RITUXIMAB [Suspect]
     Active Substance: RITUXIMAB
  190. RITUXIMAB [Suspect]
     Active Substance: RITUXIMAB
  191. CANDESARTAN [Suspect]
     Active Substance: CANDESARTAN
     Indication: Migraine
     Route: 048
  192. COSENTYX [Concomitant]
     Active Substance: SECUKINUMAB
     Indication: Product used for unknown indication
  193. OXYCODONE [Suspect]
     Active Substance: OXYCODONE
     Indication: Product used for unknown indication
  194. OXYCODONE [Suspect]
     Active Substance: OXYCODONE
  195. ERELZI [Suspect]
     Active Substance: ETANERCEPT-SZZS
     Indication: Rheumatoid arthritis
     Route: 058
  196. ERELZI [Suspect]
     Active Substance: ETANERCEPT-SZZS
     Route: 058
  197. ERELZI [Suspect]
     Active Substance: ETANERCEPT-SZZS
     Route: 058
  198. ERELZI [Suspect]
     Active Substance: ETANERCEPT-SZZS
  199. ETANERCEPT [Suspect]
     Active Substance: ETANERCEPT
     Indication: Rheumatoid arthritis
  200. AIMOVIG [Suspect]
     Active Substance: ERENUMAB-AOOE
     Indication: Migraine
  201. ADALIMUMAB [Suspect]
     Active Substance: ADALIMUMAB
     Indication: Rheumatoid arthritis
     Route: 058
  202. ADALIMUMAB [Suspect]
     Active Substance: ADALIMUMAB
     Route: 058
  203. ADALIMUMAB [Suspect]
     Active Substance: ADALIMUMAB
     Route: 058
  204. ADALIMUMAB [Suspect]
     Active Substance: ADALIMUMAB
     Route: 058
  205. ADALIMUMAB [Suspect]
     Active Substance: ADALIMUMAB
     Route: 058
  206. ADALIMUMAB [Suspect]
     Active Substance: ADALIMUMAB
     Route: 058
  207. ADALIMUMAB [Suspect]
     Active Substance: ADALIMUMAB
     Route: 058
  208. COSENTYX [Suspect]
     Active Substance: SECUKINUMAB
     Indication: Psoriatic arthropathy
  209. TRIAMCINOLONE ACETONIDE [Suspect]
     Active Substance: TRIAMCINOLONE ACETONIDE
     Indication: Rheumatoid arthritis
  210. TRIAMCINOLONE ACETONIDE [Suspect]
     Active Substance: TRIAMCINOLONE ACETONIDE
  211. TRIAMCINOLONE ACETONIDE [Suspect]
     Active Substance: TRIAMCINOLONE ACETONIDE
  212. MINOCYCLINE [Suspect]
     Active Substance: MINOCYCLINE HYDROCHLORIDE
     Indication: Rheumatoid arthritis
  213. MINOCYCLINE [Suspect]
     Active Substance: MINOCYCLINE HYDROCHLORIDE
  214. MINOCYCLINE [Suspect]
     Active Substance: MINOCYCLINE HYDROCHLORIDE
  215. MYOCHRYSINE [Suspect]
     Active Substance: GOLD SODIUM THIOMALATE
     Indication: Rheumatoid arthritis
     Route: 030
  216. MYOCHRYSINE [Suspect]
     Active Substance: GOLD SODIUM THIOMALATE
  217. MYOCHRYSINE [Suspect]
     Active Substance: GOLD SODIUM THIOMALATE
     Route: 030
  218. MYOCHRYSINE [Suspect]
     Active Substance: GOLD SODIUM THIOMALATE
  219. KEVZARA [Suspect]
     Active Substance: SARILUMAB
     Indication: Product used for unknown indication
  220. NICOTINAMIDE [Suspect]
     Active Substance: NIACINAMIDE
     Indication: Product used for unknown indication
  221. NICOTINAMIDE [Suspect]
     Active Substance: NIACINAMIDE
  222. MEGLUMINE [Suspect]
     Active Substance: MEGLUMINE
     Indication: Product used for unknown indication
  223. MEGLUMINE [Suspect]
     Active Substance: MEGLUMINE
  224. ORENCIA [Suspect]
     Active Substance: ABATACEPT
     Indication: Rheumatoid arthritis
     Route: 042
  225. ORENCIA [Suspect]
     Active Substance: ABATACEPT
     Route: 058
  226. ORENCIA [Suspect]
     Active Substance: ABATACEPT
  227. ORENCIA [Suspect]
     Active Substance: ABATACEPT
  228. ORENCIA [Suspect]
     Active Substance: ABATACEPT
  229. ORENCIA [Suspect]
     Active Substance: ABATACEPT
  230. ORENCIA [Suspect]
     Active Substance: ABATACEPT
  231. ORENCIA [Suspect]
     Active Substance: ABATACEPT
  232. ORENCIA [Suspect]
     Active Substance: ABATACEPT
  233. ORENCIA [Suspect]
     Active Substance: ABATACEPT
     Route: 042
  234. ORENCIA [Suspect]
     Active Substance: ABATACEPT
     Route: 058
  235. ORENCIA [Suspect]
     Active Substance: ABATACEPT
  236. ORENCIA [Suspect]
     Active Substance: ABATACEPT
  237. ORENCIA [Suspect]
     Active Substance: ABATACEPT
     Route: 042
  238. ORENCIA [Suspect]
     Active Substance: ABATACEPT
  239. ORENCIA [Suspect]
     Active Substance: ABATACEPT
  240. ORENCIA [Suspect]
     Active Substance: ABATACEPT
  241. ORENCIA [Suspect]
     Active Substance: ABATACEPT
  242. PHTHALYLSULFATHIAZOLE [Suspect]
     Active Substance: PHTHALYLSULFATHIAZOLE
     Indication: Rheumatoid arthritis
     Route: 048
  243. PHTHALYLSULFATHIAZOLE [Suspect]
     Active Substance: PHTHALYLSULFATHIAZOLE
     Route: 058
  244. PHTHALYLSULFATHIAZOLE [Suspect]
     Active Substance: PHTHALYLSULFATHIAZOLE
  245. PHTHALYLSULFATHIAZOLE [Suspect]
     Active Substance: PHTHALYLSULFATHIAZOLE
     Route: 048
  246. PHTHALYLSULFATHIAZOLE [Suspect]
     Active Substance: PHTHALYLSULFATHIAZOLE
     Route: 048
  247. PHTHALYLSULFATHIAZOLE [Suspect]
     Active Substance: PHTHALYLSULFATHIAZOLE
  248. PHTHALYLSULFATHIAZOLE [Suspect]
     Active Substance: PHTHALYLSULFATHIAZOLE
  249. PHTHALYLSULFATHIAZOLE [Suspect]
     Active Substance: PHTHALYLSULFATHIAZOLE
  250. PHTHALYLSULFATHIAZOLE [Suspect]
     Active Substance: PHTHALYLSULFATHIAZOLE
  251. PHTHALYLSULFATHIAZOLE [Suspect]
     Active Substance: PHTHALYLSULFATHIAZOLE
  252. PHTHALYLSULFATHIAZOLE [Suspect]
     Active Substance: PHTHALYLSULFATHIAZOLE
  253. PHTHALYLSULFATHIAZOLE [Suspect]
     Active Substance: PHTHALYLSULFATHIAZOLE
     Route: 048
  254. PHTHALYLSULFATHIAZOLE [Suspect]
     Active Substance: PHTHALYLSULFATHIAZOLE
  255. PHTHALYLSULFATHIAZOLE [Suspect]
     Active Substance: PHTHALYLSULFATHIAZOLE
  256. PHTHALYLSULFATHIAZOLE [Suspect]
     Active Substance: PHTHALYLSULFATHIAZOLE
  257. PHTHALYLSULFATHIAZOLE [Suspect]
     Active Substance: PHTHALYLSULFATHIAZOLE
  258. PHTHALYLSULFATHIAZOLE [Suspect]
     Active Substance: PHTHALYLSULFATHIAZOLE
  259. PHTHALYLSULFATHIAZOLE [Suspect]
     Active Substance: PHTHALYLSULFATHIAZOLE
  260. PHTHALYLSULFATHIAZOLE [Suspect]
     Active Substance: PHTHALYLSULFATHIAZOLE
  261. PSEUDOEPHEDRINE HYDROCHLORIDE [Suspect]
     Active Substance: PSEUDOEPHEDRINE HYDROCHLORIDE
     Indication: Product used for unknown indication
  262. PSEUDOEPHEDRINE HYDROCHLORIDE [Suspect]
     Active Substance: PSEUDOEPHEDRINE HYDROCHLORIDE
     Indication: Rheumatoid arthritis
  263. PSEUDOEPHEDRINE HYDROCHLORIDE [Suspect]
     Active Substance: PSEUDOEPHEDRINE HYDROCHLORIDE
  264. XELJANZ [Suspect]
     Active Substance: TOFACITINIB CITRATE
     Indication: Rheumatoid arthritis
  265. XELJANZ [Suspect]
     Active Substance: TOFACITINIB CITRATE
     Route: 048
  266. XELJANZ [Suspect]
     Active Substance: TOFACITINIB CITRATE
     Route: 048
  267. XELJANZ [Suspect]
     Active Substance: TOFACITINIB CITRATE
     Route: 048
  268. XELJANZ [Suspect]
     Active Substance: TOFACITINIB CITRATE
     Route: 048
  269. XELJANZ [Suspect]
     Active Substance: TOFACITINIB CITRATE
  270. XELJANZ [Suspect]
     Active Substance: TOFACITINIB CITRATE
     Route: 048
  271. XELJANZ [Suspect]
     Active Substance: TOFACITINIB CITRATE
     Route: 048
  272. XELJANZ [Suspect]
     Active Substance: TOFACITINIB CITRATE
     Route: 048
  273. XELJANZ [Suspect]
     Active Substance: TOFACITINIB CITRATE
     Route: 048
  274. XELJANZ [Suspect]
     Active Substance: TOFACITINIB CITRATE
  275. XELJANZ [Suspect]
     Active Substance: TOFACITINIB CITRATE
  276. TRAMADOL HYDROCHLORIDE [Suspect]
     Active Substance: TRAMADOL HYDROCHLORIDE
     Indication: Product used for unknown indication
  277. TRAMADOL HYDROCHLORIDE [Suspect]
     Active Substance: TRAMADOL HYDROCHLORIDE
  278. MYRBETRIQ [Suspect]
     Active Substance: MIRABEGRON
     Indication: Product used for unknown indication
  279. MYRBETRIQ [Suspect]
     Active Substance: MIRABEGRON
  280. MYRBETRIQ [Suspect]
     Active Substance: MIRABEGRON
  281. MYRBETRIQ [Suspect]
     Active Substance: MIRABEGRON
  282. NAPROSYN [Suspect]
     Active Substance: NAPROXEN
     Indication: Product used for unknown indication
  283. NAPROSYN [Suspect]
     Active Substance: NAPROXEN
  284. NAPROSYN [Suspect]
     Active Substance: NAPROXEN
  285. NAPROSYN [Suspect]
     Active Substance: NAPROXEN
  286. NAPROSYN [Suspect]
     Active Substance: NAPROXEN
  287. NUCALA [Suspect]
     Active Substance: MEPOLIZUMAB
     Indication: Product used for unknown indication
  288. NUCALA [Suspect]
     Active Substance: MEPOLIZUMAB
  289. NUCALA [Suspect]
     Active Substance: MEPOLIZUMAB
  290. NUCALA [Suspect]
     Active Substance: MEPOLIZUMAB
  291. RANITIDINE [Suspect]
     Active Substance: RANITIDINE
     Indication: Product used for unknown indication
  292. RANITIDINE [Suspect]
     Active Substance: RANITIDINE
  293. TOPIRAMATE [Suspect]
     Active Substance: TOPIRAMATE
     Indication: Product used for unknown indication
  294. TOPIRAMATE [Suspect]
     Active Substance: TOPIRAMATE
  295. CALCIUM CITRATE [Suspect]
     Active Substance: CALCIUM CITRATE
     Indication: Product used for unknown indication
  296. CALCIUM CITRATE [Suspect]
     Active Substance: CALCIUM CITRATE
  297. AZATHIOPRINE SODIUM [Suspect]
     Active Substance: AZATHIOPRINE SODIUM
     Indication: Rheumatoid arthritis
  298. AZATHIOPRINE SODIUM [Suspect]
     Active Substance: AZATHIOPRINE SODIUM
  299. AZATHIOPRINE SODIUM [Suspect]
     Active Substance: AZATHIOPRINE SODIUM
  300. AZATHIOPRINE SODIUM [Suspect]
     Active Substance: AZATHIOPRINE SODIUM
  301. DICLOFENAC SODIUM [Suspect]
     Active Substance: DICLOFENAC SODIUM
     Indication: Product used for unknown indication
  302. DICLOFENAC SODIUM [Suspect]
     Active Substance: DICLOFENAC SODIUM
     Route: 058
  303. OTEZLA [Suspect]
     Active Substance: APREMILAST
     Indication: Rheumatoid arthritis
  304. Desogestrel, etinilestradiol [Concomitant]
     Indication: Product used for unknown indication
  305. AZATHIOPRINE [Suspect]
     Active Substance: AZATHIOPRINE
     Indication: Rheumatoid arthritis
  306. AZATHIOPRINE [Suspect]
     Active Substance: AZATHIOPRINE
  307. CIMZIA [Suspect]
     Active Substance: CERTOLIZUMAB PEGOL
     Indication: Rheumatoid arthritis
  308. CIMZIA [Suspect]
     Active Substance: CERTOLIZUMAB PEGOL
     Indication: Psoriasis
  309. CIMZIA [Suspect]
     Active Substance: CERTOLIZUMAB PEGOL
  310. CIMZIA [Suspect]
     Active Substance: CERTOLIZUMAB PEGOL
     Route: 058
  311. CIMZIA [Suspect]
     Active Substance: CERTOLIZUMAB PEGOL
  312. CIMZIA [Suspect]
     Active Substance: CERTOLIZUMAB PEGOL
  313. CIMZIA [Suspect]
     Active Substance: CERTOLIZUMAB PEGOL
  314. CIMZIA [Suspect]
     Active Substance: CERTOLIZUMAB PEGOL
  315. CIMZIA [Suspect]
     Active Substance: CERTOLIZUMAB PEGOL
  316. DESOXIMETASONE [Suspect]
     Active Substance: DESOXIMETASONE
     Indication: Rheumatoid arthritis
     Route: 048
  317. DESOXIMETASONE [Suspect]
     Active Substance: DESOXIMETASONE
     Route: 058
  318. DESOXIMETASONE [Suspect]
     Active Substance: DESOXIMETASONE
     Route: 048
  319. DESOXIMETASONE [Suspect]
     Active Substance: DESOXIMETASONE
  320. DESOXIMETASONE [Suspect]
     Active Substance: DESOXIMETASONE
  321. DESOXIMETASONE [Suspect]
     Active Substance: DESOXIMETASONE
  322. DESOXIMETASONE [Suspect]
     Active Substance: DESOXIMETASONE
  323. DESOXIMETASONE [Suspect]
     Active Substance: DESOXIMETASONE
  324. DESOXIMETASONE [Suspect]
     Active Substance: DESOXIMETASONE
  325. CHLORHEXIDINE GLUCONATE [Suspect]
     Active Substance: CHLORHEXIDINE GLUCONATE
     Indication: Product used for unknown indication
     Route: 002
  326. CHLORHEXIDINE GLUCONATE [Suspect]
     Active Substance: CHLORHEXIDINE GLUCONATE
  327. FOSAMAX [Suspect]
     Active Substance: ALENDRONATE SODIUM
     Indication: Rheumatoid arthritis
     Route: 048
  328. FOSAMAX [Suspect]
     Active Substance: ALENDRONATE SODIUM
     Route: 048
  329. FOSAMAX [Suspect]
     Active Substance: ALENDRONATE SODIUM
  330. FOSAMAX [Suspect]
     Active Substance: ALENDRONATE SODIUM
  331. FOSAMAX [Suspect]
     Active Substance: ALENDRONATE SODIUM
  332. FOSAMAX [Suspect]
     Active Substance: ALENDRONATE SODIUM
  333. ACETAMINOPHEN [Suspect]
     Active Substance: ACETAMINOPHEN
     Indication: Arthralgia
  334. ACETAMINOPHEN [Suspect]
     Active Substance: ACETAMINOPHEN
     Indication: Rheumatoid arthritis
  335. ACETAMINOPHEN [Suspect]
     Active Substance: ACETAMINOPHEN
     Route: 058
  336. ALENDRONIC ACID [Suspect]
     Active Substance: ALENDRONIC ACID
     Indication: Rheumatoid arthritis
     Route: 048
  337. ALENDRONIC ACID [Suspect]
     Active Substance: ALENDRONIC ACID
  338. ALENDRONIC ACID [Suspect]
     Active Substance: ALENDRONIC ACID
  339. CORTISONE ACETATE [Suspect]
     Active Substance: CORTISONE ACETATE
     Indication: Rheumatoid arthritis
  340. CORTISONE ACETATE [Suspect]
     Active Substance: CORTISONE ACETATE
  341. CORTISONE ACETATE [Suspect]
     Active Substance: CORTISONE ACETATE
  342. CORTISONE ACETATE [Suspect]
     Active Substance: CORTISONE ACETATE
  343. GOLD [Suspect]
     Active Substance: GOLD
     Indication: Product used for unknown indication
  344. HYDROCORTISONE BUTYRATE [Suspect]
     Active Substance: HYDROCORTISONE BUTYRATE
     Indication: Rheumatoid arthritis
  345. PSEUDOEPHEDRINE [Suspect]
     Active Substance: PSEUDOEPHEDRINE
     Indication: Rheumatoid arthritis
  346. PSEUDOEPHEDRINE [Suspect]
     Active Substance: PSEUDOEPHEDRINE
  347. PSEUDOEPHEDRINE [Suspect]
     Active Substance: PSEUDOEPHEDRINE
  348. PSEUDOEPHEDRINE [Suspect]
     Active Substance: PSEUDOEPHEDRINE
  349. PSEUDOEPHEDRINE [Suspect]
     Active Substance: PSEUDOEPHEDRINE
  350. REMICADE [Suspect]
     Active Substance: INFLIXIMAB
     Indication: Rheumatoid arthritis
     Route: 058
  351. REMICADE [Suspect]
     Active Substance: INFLIXIMAB
     Route: 043
  352. REMICADE [Suspect]
     Active Substance: INFLIXIMAB
     Route: 043
  353. REMICADE [Suspect]
     Active Substance: INFLIXIMAB
  354. REMICADE [Suspect]
     Active Substance: INFLIXIMAB
  355. REMICADE [Suspect]
     Active Substance: INFLIXIMAB
  356. REMICADE [Suspect]
     Active Substance: INFLIXIMAB
  357. REMICADE [Suspect]
     Active Substance: INFLIXIMAB
  358. REMICADE [Suspect]
     Active Substance: INFLIXIMAB
     Route: 042
  359. SULFAMETHOXAZOLE [Suspect]
     Active Substance: SULFAMETHOXAZOLE
     Indication: Rheumatoid arthritis
     Route: 048
  360. SULFAMETHOXAZOLE [Suspect]
     Active Substance: SULFAMETHOXAZOLE
     Route: 048
  361. SULFAMETHOXAZOLE [Suspect]
     Active Substance: SULFAMETHOXAZOLE
     Route: 048
  362. ATOMOXETINE HYDROCHLORIDE [Suspect]
     Active Substance: ATOMOXETINE HYDROCHLORIDE
     Indication: Migraine
  363. BERINERT [Suspect]
     Active Substance: HUMAN C1-ESTERASE INHIBITOR
     Indication: Product used for unknown indication
  364. BOTULINUM TOXIN TYPE A [Suspect]
     Active Substance: BOTULINUM TOXIN TYPE A
     Indication: Product used for unknown indication
  365. BUTRANS [Suspect]
     Active Substance: BUPRENORPHINE
     Indication: Product used for unknown indication
  366. BUTRANS [Suspect]
     Active Substance: BUPRENORPHINE
  367. CELEBREX [Suspect]
     Active Substance: CELECOXIB
     Indication: Product used for unknown indication
     Route: 048
  368. CELEBREX [Suspect]
     Active Substance: CELECOXIB
     Route: 048
  369. CELEBREX [Suspect]
     Active Substance: CELECOXIB
  370. CELEBREX [Suspect]
     Active Substance: CELECOXIB
  371. CELEBREX [Suspect]
     Active Substance: CELECOXIB
  372. CELEBREX [Suspect]
     Active Substance: CELECOXIB
  373. CORTISONE [Suspect]
     Active Substance: CORTISONE
     Indication: Rheumatoid arthritis
  374. CORTISONE [Suspect]
     Active Substance: CORTISONE
  375. CORTISONE [Suspect]
     Active Substance: CORTISONE
  376. DOMPERIDONE MALEATE [Suspect]
     Active Substance: DOMPERIDONE MALEATE
     Indication: Product used for unknown indication
  377. DOMPERIDONE MALEATE [Suspect]
     Active Substance: DOMPERIDONE MALEATE
  378. FLUMETHASONE PIVALATE [Suspect]
     Active Substance: FLUMETHASONE PIVALATE
     Indication: Product used for unknown indication
  379. FLUMETHASONE PIVALATE [Suspect]
     Active Substance: FLUMETHASONE PIVALATE
  380. FLUMETHASONE PIVALATE [Suspect]
     Active Substance: FLUMETHASONE PIVALATE
  381. LAMICTAL [Suspect]
     Active Substance: LAMOTRIGINE
     Indication: Product used for unknown indication
     Route: 048
  382. LAMICTAL [Suspect]
     Active Substance: LAMOTRIGINE
  383. LAMICTAL [Suspect]
     Active Substance: LAMOTRIGINE
  384. LAMICTAL [Suspect]
     Active Substance: LAMOTRIGINE
  385. FLUMETHASONE PIVALATE [Suspect]
     Active Substance: FLUMETHASONE PIVALATE
     Indication: Product used for unknown indication
     Route: 058
  386. NAPROXEN SODIUM [Suspect]
     Active Substance: NAPROXEN SODIUM
     Indication: Rheumatoid arthritis
  387. NAPROXEN SODIUM [Suspect]
     Active Substance: NAPROXEN SODIUM
  388. NAPROXEN SODIUM [Suspect]
     Active Substance: NAPROXEN SODIUM
  389. TOFACITINIB [Suspect]
     Active Substance: TOFACITINIB
     Indication: Rheumatoid arthritis
  390. ACETAMINOPHEN AND CODEINE [Suspect]
     Active Substance: ACETAMINOPHEN\CODEINE PHOSPHATE
     Indication: Product used for unknown indication
  391. ALENDRONATE SODIUM [Suspect]
     Active Substance: ALENDRONATE SODIUM
     Indication: Rheumatoid arthritis
  392. ALENDRONATE SODIUM [Suspect]
     Active Substance: ALENDRONATE SODIUM
  393. ALENDRONATE SODIUM [Suspect]
     Active Substance: ALENDRONATE SODIUM
  394. ALENDRONATE SODIUM [Suspect]
     Active Substance: ALENDRONATE SODIUM
     Route: 048
  395. DICLOFENAC SODIUM [Suspect]
     Active Substance: DICLOFENAC SODIUM
     Indication: Product used for unknown indication
  396. DICLOFENAC SODIUM [Suspect]
     Active Substance: DICLOFENAC SODIUM
  397. ATOMOXETINE [Suspect]
     Active Substance: ATOMOXETINE
     Indication: Migraine
  398. ATOMOXETINE [Suspect]
     Active Substance: ATOMOXETINE
  399. ATOMOXETINE [Suspect]
     Active Substance: ATOMOXETINE
  400. DICLOFENAC POTASSIUM [Suspect]
     Active Substance: DICLOFENAC POTASSIUM
     Indication: Product used for unknown indication
  401. HYDROCORTISONE [Suspect]
     Active Substance: HYDROCORTISONE
     Indication: Product used for unknown indication
  402. METHYLPREDNISOLONE SODIUM SUCCINATE [Suspect]
     Active Substance: METHYLPREDNISOLONE SODIUM SUCCINATE
     Indication: Product used for unknown indication
  403. METHYLPREDNISOLONE SODIUM SUCCINATE [Suspect]
     Active Substance: METHYLPREDNISOLONE SODIUM SUCCINATE
  404. VITAMIN C [Suspect]
     Active Substance: ASCORBIC ACID
     Indication: Product used for unknown indication
  405. ERGOCALCIFEROL [Suspect]
     Active Substance: ERGOCALCIFEROL
     Indication: Product used for unknown indication
  406. ERGOCALCIFEROL [Suspect]
     Active Substance: ERGOCALCIFEROL
  407. ERGOCALCIFEROL [Suspect]
     Active Substance: ERGOCALCIFEROL
  408. ERGOCALCIFEROL [Suspect]
     Active Substance: ERGOCALCIFEROL
  409. FLUMETHASONE [Suspect]
     Active Substance: FLUMETHASONE
     Indication: Product used for unknown indication
  410. HAIR KERATIN AMINO ACIDS GOLD COMPLEX [Suspect]
     Active Substance: HAIR KERATIN AMINO ACIDS GOLD COMPLEX
     Indication: Product used for unknown indication
  411. GOLD SODIUM THIOMALATE [Suspect]
     Active Substance: GOLD SODIUM THIOMALATE
     Indication: Product used for unknown indication
  412. GOLD SODIUM THIOMALATE [Suspect]
     Active Substance: GOLD SODIUM THIOMALATE
  413. HYDROCORTISONE PROBUTATE [Suspect]
     Active Substance: HYDROCORTISONE PROBUTATE
     Indication: Rheumatoid arthritis
  414. ISOPROPYL ALCOHOL [Suspect]
     Active Substance: ISOPROPYL ALCOHOL
     Indication: Product used for unknown indication
  415. ISOPROPYL ALCOHOL [Suspect]
     Active Substance: ISOPROPYL ALCOHOL
  416. MINOCYCLINE HYDROCHLORIDE [Suspect]
     Active Substance: MINOCYCLINE HYDROCHLORIDE
     Indication: Product used for unknown indication
  417. MINOCYCLINE HYDROCHLORIDE [Suspect]
     Active Substance: MINOCYCLINE HYDROCHLORIDE
  418. MINOCYCLINE HYDROCHLORIDE [Suspect]
     Active Substance: MINOCYCLINE HYDROCHLORIDE
  419. METHOTREXATE SODIUM [Suspect]
     Active Substance: METHOTREXATE SODIUM
     Indication: Rheumatoid arthritis
  420. METHOTREXATE SODIUM [Suspect]
     Active Substance: METHOTREXATE SODIUM
  421. METHOTREXATE SODIUM [Suspect]
     Active Substance: METHOTREXATE SODIUM
  422. METHOTREXATE SODIUM [Suspect]
     Active Substance: METHOTREXATE SODIUM
  423. NAPROXEN [Concomitant]
     Active Substance: NAPROXEN
     Indication: Product used for unknown indication
  424. ENBREL [Suspect]
     Active Substance: ETANERCEPT
     Indication: Rheumatoid arthritis
  425. ENBREL [Suspect]
     Active Substance: ETANERCEPT
     Route: 058
  426. ENBREL [Suspect]
     Active Substance: ETANERCEPT
     Route: 058
  427. ENBREL [Suspect]
     Active Substance: ETANERCEPT
     Dosage: DAILY DOSE: 10 MILLIGRAM, QWK (7 MONTH)
     Route: 058
  428. ENBREL [Suspect]
     Active Substance: ETANERCEPT
     Route: 058
  429. ENBREL [Suspect]
     Active Substance: ETANERCEPT
     Route: 058
  430. ENBREL [Suspect]
     Active Substance: ETANERCEPT
     Dosage: DAILY DOSE: 40 MILLIGRAM, QWK (7 MONTH)
     Route: 058
  431. ENBREL [Suspect]
     Active Substance: ETANERCEPT
     Route: 058
  432. ENBREL [Suspect]
     Active Substance: ETANERCEPT
     Route: 058
  433. ENBREL [Suspect]
     Active Substance: ETANERCEPT
  434. INFLIXIMAB [Suspect]
     Active Substance: INFLIXIMAB
     Indication: Rheumatoid arthritis
     Route: 042
  435. INFLIXIMAB [Suspect]
     Active Substance: INFLIXIMAB
  436. INFLIXIMAB [Suspect]
     Active Substance: INFLIXIMAB
  437. INFLIXIMAB [Suspect]
     Active Substance: INFLIXIMAB
  438. INFLIXIMAB [Suspect]
     Active Substance: INFLIXIMAB
  439. INFLIXIMAB [Suspect]
     Active Substance: INFLIXIMAB
  440. INFLIXIMAB [Suspect]
     Active Substance: INFLIXIMAB
  441. INFLIXIMAB [Suspect]
     Active Substance: INFLIXIMAB
     Route: 042
  442. INFLIXIMAB [Suspect]
     Active Substance: INFLIXIMAB
  443. INFLIXIMAB [Suspect]
     Active Substance: INFLIXIMAB
  444. ARAVA [Suspect]
     Active Substance: LEFLUNOMIDE
     Indication: Rheumatoid arthritis
     Route: 048
  445. ARAVA [Suspect]
     Active Substance: LEFLUNOMIDE
     Route: 048
  446. ARAVA [Suspect]
     Active Substance: LEFLUNOMIDE
     Route: 048
  447. ARAVA [Suspect]
     Active Substance: LEFLUNOMIDE
     Route: 048
  448. ARAVA [Suspect]
     Active Substance: LEFLUNOMIDE
     Route: 048
  449. ARAVA [Suspect]
     Active Substance: LEFLUNOMIDE
  450. CALCIUM ASCORBATE [Suspect]
     Active Substance: CALCIUM ASCORBATE
     Indication: Product used for unknown indication
  451. CALCIUM ASCORBATE [Suspect]
     Active Substance: CALCIUM ASCORBATE
  452. CALCIUM GLUBIONATE [Suspect]
     Active Substance: CALCIUM GLUBIONATE
     Indication: Product used for unknown indication
  453. CALCIUM GLUBIONATE [Suspect]
     Active Substance: CALCIUM GLUBIONATE
  454. CETIRIZINE HYDROCHLORIDE [Suspect]
     Active Substance: CETIRIZINE HYDROCHLORIDE
     Indication: Rheumatoid arthritis
  455. CETIRIZINE HYDROCHLORIDE [Suspect]
     Active Substance: CETIRIZINE HYDROCHLORIDE
  456. CALTRATE WITH VITAMIN D [Suspect]
     Active Substance: CALCIUM CARBONATE\CHOLECALCIFEROL
     Indication: Product used for unknown indication
  457. TUMS ULTRA [Suspect]
     Active Substance: CALCIUM CARBONATE
     Indication: Product used for unknown indication
  458. CHLORHEXIDINE GLUCONATE\ISOPROPYL ALCOHOL [Suspect]
     Active Substance: CHLORHEXIDINE GLUCONATE\ISOPROPYL ALCOHOL
     Indication: Product used for unknown indication

REACTIONS (106)
  - Pneumonia [Fatal]
  - Adverse reaction [Fatal]
  - Contraindicated product administered [Fatal]
  - Obesity [Fatal]
  - Onychomycosis [Fatal]
  - Hepatic enzyme increased [Fatal]
  - Blepharospasm [Fatal]
  - Discomfort [Fatal]
  - Glossodynia [Fatal]
  - Peripheral venous disease [Fatal]
  - Asthenia [Fatal]
  - Breast cancer stage III [Fatal]
  - Fibromyalgia [Fatal]
  - Abdominal pain upper [Fatal]
  - Facet joint syndrome [Fatal]
  - Headache [Fatal]
  - Peripheral swelling [Fatal]
  - Dizziness [Fatal]
  - Hepatic enzyme [Fatal]
  - Off label use [Fatal]
  - Helicobacter infection [Fatal]
  - Urticaria [Fatal]
  - Gastrointestinal disorder [Fatal]
  - Wheezing [Fatal]
  - C-reactive protein increased [Fatal]
  - Drug ineffective [Fatal]
  - Product use in unapproved indication [Fatal]
  - Depression [Fatal]
  - Injection site reaction [Fatal]
  - Confusional state [Fatal]
  - Dry mouth [Fatal]
  - Coeliac disease [Fatal]
  - Weight increased [Fatal]
  - Vomiting [Fatal]
  - Hand deformity [Fatal]
  - Onychomadesis [Fatal]
  - Osteoarthritis [Fatal]
  - Paraesthesia [Fatal]
  - General physical health deterioration [Fatal]
  - Epilepsy [Fatal]
  - Blister [Fatal]
  - Grip strength decreased [Fatal]
  - Folliculitis [Fatal]
  - Wound [Fatal]
  - Product quality issue [Fatal]
  - Duodenal ulcer perforation [Fatal]
  - Taste disorder [Fatal]
  - Gait inability [Fatal]
  - Sleep disorder [Fatal]
  - Drug intolerance [Fatal]
  - Drug hypersensitivity [Fatal]
  - Wound infection [Fatal]
  - Swelling [Fatal]
  - Abdominal pain [Fatal]
  - Nasopharyngitis [Fatal]
  - Nail disorder [Fatal]
  - Musculoskeletal pain [Fatal]
  - Muscle spasms [Fatal]
  - Muscle injury [Fatal]
  - Migraine [Fatal]
  - Memory impairment [Fatal]
  - Lung disorder [Fatal]
  - Lower respiratory tract infection [Fatal]
  - Liver injury [Fatal]
  - Lip dry [Fatal]
  - Joint swelling [Fatal]
  - Joint range of motion decreased [Fatal]
  - Intentional product use issue [Fatal]
  - Type 2 diabetes mellitus [Fatal]
  - Systemic lupus erythematosus [Fatal]
  - Synovitis [Fatal]
  - Stomatitis [Fatal]
  - Rheumatoid arthritis [Fatal]
  - Rash [Fatal]
  - Psoriatic arthropathy [Fatal]
  - Pericarditis [Fatal]
  - Pemphigus [Fatal]
  - Pain [Fatal]
  - Night sweats [Fatal]
  - Insomnia [Fatal]
  - Irritable bowel syndrome [Fatal]
  - Injury [Fatal]
  - Infusion related reaction [Fatal]
  - Impaired healing [Fatal]
  - Hypoaesthesia [Fatal]
  - Hypertension [Fatal]
  - Hypercholesterolaemia [Fatal]
  - Hepatitis [Fatal]
  - Gastrooesophageal reflux disease [Fatal]
  - Finger deformity [Fatal]
  - Fatigue [Fatal]
  - Fall [Fatal]
  - Dyspepsia [Fatal]
  - Drug-induced liver injury [Fatal]
  - Diarrhoea [Fatal]
  - Condition aggravated [Fatal]
  - Bursitis [Fatal]
  - Blood cholesterol increased [Fatal]
  - Back injury [Fatal]
  - Arthropathy [Fatal]
  - Arthralgia [Fatal]
  - Anti-cyclic citrullinated peptide antibody positive [Fatal]
  - Alopecia [Fatal]
  - Abdominal discomfort [Fatal]
  - Abdominal distension [Fatal]
  - Inflammation [Fatal]
